FAERS Safety Report 7146178-0 (Version None)
Quarter: 2010Q4

REPORT INFORMATION
  Report Type: 
  Country: None (occurrence: None)
  Receive Date: 20101208
  Receipt Date: 20101125
  Transmission Date: 20110411
  Serious: Yes (Hospitalization, Other)
  Sender: FDA-Public Use
  Company Number: PHHY2010FR80429

PATIENT
  Age: 64 Year
  Sex: Male

DRUGS (5)
  1. VALSARTAN  AND HYDROCHLOROTHIAZIDE [Suspect]
     Dosage: 1 DF, QD
     Route: 048
     Dates: end: 20100823
  2. TEGRETOL [Concomitant]
  3. LOXEN [Concomitant]
  4. KEPPRA [Concomitant]
  5. PRAVASTATIN [Concomitant]

REACTIONS (8)
  - CONFUSIONAL STATE [None]
  - HAEMATOMA [None]
  - HYPOKALAEMIA [None]
  - HYPONATRAEMIA [None]
  - LEUKOCYTOSIS [None]
  - METABOLIC ENCEPHALOPATHY [None]
  - MIOSIS [None]
  - RESPIRATORY ACIDOSIS [None]
